FAERS Safety Report 19082571 (Version 1)
Quarter: 2021Q2

REPORT INFORMATION
  Report Type: Spontaneous
  Country: EC (occurrence: EC)
  Receive Date: 20210401
  Receipt Date: 20210401
  Transmission Date: 20210717
  Serious: Yes (Death, Other)
  Sender: FDA-Public Use
  Company Number: EC-AMGEN-ECUSP2021048104

PATIENT
  Sex: Female

DRUGS (2)
  1. PROLIA [Suspect]
     Active Substance: DENOSUMAB
     Indication: OSTEOPOROSIS
     Dosage: 60 MILLIGRAM, CYCLICAL
     Route: 058
     Dates: start: 20181211, end: 20210119
  2. OCTREOTIDE. [Suspect]
     Active Substance: OCTREOTIDE
     Indication: ENDOCRINE NEOPLASM
     Dosage: UNK UNK, CYCLICAL
     Route: 065
     Dates: start: 20180713, end: 20210209

REACTIONS (2)
  - Death [Fatal]
  - Pain [Unknown]

NARRATIVE: CASE EVENT DATE: 2021
